FAERS Safety Report 6391647-4 (Version None)
Quarter: 2009Q4

REPORT INFORMATION
  Report Type: 
  Country: None (occurrence: None)
  Receive Date: 20091007
  Receipt Date: 20090924
  Transmission Date: 20100525
  Serious: Yes (Other)
  Sender: FDA-Public Use
  Company Number: US-PFIZER INC-2009263919

PATIENT
  Sex: Male
  Weight: 83.9 kg

DRUGS (10)
  1. VIAGRA [Suspect]
     Indication: ERECTILE DYSFUNCTION
     Dosage: 100 MG, AS NEEDED
  2. ADDERALL 10 [Concomitant]
     Dosage: UNK
  3. PROTONIX [Concomitant]
     Dosage: UNK
  4. LIPITOR [Concomitant]
     Indication: LIPIDS INCREASED
     Dosage: UNK
  5. DESYREL [Concomitant]
     Dosage: UNK
  6. KLONOPIN [Concomitant]
     Dosage: UNK
  7. LUVOX [Concomitant]
     Dosage: UNK
  8. ZYPREXA [Concomitant]
     Indication: SLEEP DISORDER
     Dosage: UNK
  9. VITAMINS [Concomitant]
     Dosage: UNK
  10. MINERALS NOS [Concomitant]
     Dosage: UNK

REACTIONS (6)
  - CAROTID ARTERY DISEASE [None]
  - CATARACT [None]
  - MACULAR DEGENERATION [None]
  - SCOTOMA [None]
  - VISUAL ACUITY REDUCED [None]
  - VISUAL IMPAIRMENT [None]
